FAERS Safety Report 20484905 (Version 1)
Quarter: 2022Q1

REPORT INFORMATION
  Report Type: Spontaneous
  Country: US (occurrence: US)
  Receive Date: 20220217
  Receipt Date: 20220217
  Transmission Date: 20220423
  Serious: Yes (Other)
  Sender: FDA-Public Use
  Company Number: US-SA-SAC20220209000930

PATIENT
  Sex: Female

DRUGS (5)
  1. AUBAGIO [Suspect]
     Active Substance: TERIFLUNOMIDE
     Indication: Relapsing-remitting multiple sclerosis
  2. HUMAN IMMUNOGLOBULIN G [Concomitant]
     Active Substance: HUMAN IMMUNOGLOBULIN G
     Route: 042
  3. AVONEX [Concomitant]
     Active Substance: INTERFERON BETA-1A
  4. COPAXONE [Concomitant]
     Active Substance: GLATIRAMER ACETATE
  5. TYSABRI [Concomitant]
     Active Substance: NATALIZUMAB
     Indication: Multiple sclerosis

REACTIONS (1)
  - Multiple sclerosis [Unknown]
